FAERS Safety Report 9666280 (Version 1)
Quarter: 2013Q4

REPORT INFORMATION
  Report Type: Spontaneous
  Country: US (occurrence: None)
  Receive Date: 20131031
  Receipt Date: 20131031
  Transmission Date: 20140711
  Serious: Yes (Other)
  Sender: FDA-Public Use
  Company Number: AUR-APL-2013-09069

PATIENT
  Age: 91 Year
  Sex: Female
  Weight: 68.62 kg

DRUGS (6)
  1. AMLODIPINE (AMLODIPINE) [Suspect]
     Indication: HYPERTENSION
     Dosage: (5MG, 1 D)
  2. ATENOLOL (ATENOLOL) [Suspect]
     Indication: HYPERTENSION
     Dosage: 5MG, 1 D
  3. LISINOPRIL (LISINOPRIL) [Suspect]
     Indication: HYPERTENSION
     Dosage: 40MG, 1 D
  4. CHLORTHALIDONE [Suspect]
     Indication: HYPERTENSION
     Dosage: 40MG, 1 D)
  5. TIMOLOL (TIMOLOL) [Concomitant]
  6. LATANOPROST (LATANOPROST) [Concomitant]

REACTIONS (3)
  - Left ventricular hypertrophy [None]
  - Blood creatinine increased [None]
  - Blood pressure inadequately controlled [None]
